FAERS Safety Report 7627129-9 (Version None)
Quarter: 2011Q3

REPORT INFORMATION
  Report Type: 
  Country: None (occurrence: None)
  Receive Date: 20110721
  Receipt Date: 20110712
  Transmission Date: 20111222
  Serious: Yes (Hospitalization)
  Sender: FDA-Public Use
  Company Number: IT-ASTRAZENECA-2011SE41903

PATIENT

DRUGS (5)
  1. IRESSA [Suspect]
     Indication: NON-SMALL CELL LUNG CANCER
     Route: 048
     Dates: start: 20110217, end: 20110511
  2. PARACETAMOLO [Concomitant]
     Route: 048
     Dates: start: 20110217, end: 20110511
  3. DESAMETASONE [Concomitant]
     Route: 048
     Dates: start: 20110217, end: 20110511
  4. LYRICA [Concomitant]
     Route: 048
     Dates: start: 20110217, end: 20110511
  5. OXYCONTIN [Concomitant]
     Route: 048
     Dates: start: 20110217, end: 20110511

REACTIONS (1)
  - TOXIC SKIN ERUPTION [None]
